FAERS Safety Report 9283450 (Version 1)
Quarter: 2013Q2

REPORT INFORMATION
  Report Type: Spontaneous
  Country: CA (occurrence: CA)
  Receive Date: 20130510
  Receipt Date: 20130510
  Transmission Date: 20140414
  Serious: Yes (Hospitalization)
  Sender: FDA-Public Use
  Company Number: CA-AMGEN-CANSP2013032066

PATIENT
  Age: 52 Year
  Sex: Male

DRUGS (1)
  1. ENBREL [Suspect]
     Indication: PSORIATIC ARTHROPATHY
     Dosage: 50 MG, UNK
     Dates: start: 20020327

REACTIONS (3)
  - Severe acute respiratory syndrome [Recovering/Resolving]
  - Neuropathy peripheral [Not Recovered/Not Resolved]
  - Hyperkeratosis [Not Recovered/Not Resolved]
